FAERS Safety Report 9663962 (Version 1)
Quarter: 2013Q4

REPORT INFORMATION
  Report Type: Spontaneous
  Country: US (occurrence: None)
  Receive Date: 20131030
  Receipt Date: 20131030
  Transmission Date: 20140711
  Serious: No
  Sender: FDA-Public Use
  Company Number: None

PATIENT
  Age: 59 Year
  Sex: Female
  Weight: 77.57 kg

DRUGS (4)
  1. METHIMAZOLE [Suspect]
     Indication: HYPERTHYROIDISM
     Dates: start: 20131116, end: 20131120
  2. BIOTIN [Concomitant]
  3. IRON (FEOSOL) [Concomitant]
  4. FOLIC ACID [Concomitant]

REACTIONS (3)
  - Pruritus [None]
  - Scratch [None]
  - Neck mass [None]
